FAERS Safety Report 5160861-8 (Version None)
Quarter: 2006Q4

REPORT INFORMATION
  Report Type: 
  Country: None (occurrence: None)
  Receive Date: 20061130
  Receipt Date: 20061120
  Transmission Date: 20070319
  Serious: Yes (Other)
  Sender: FDA-Public Use
  Company Number: PHBS2006GT18125

PATIENT
  Age: 63 Year
  Sex: Female

DRUGS (3)
  1. CO-DIOVAN [Suspect]
     Indication: HYPERTENSION
     Dosage: VALS 160 / HCT 12.5 MG/DAY
     Route: 048
     Dates: start: 20020101
  2. ATENOLOL [Concomitant]
     Dosage: 25 MG/DAY
     Route: 048
  3. HYPERLIPEN [Concomitant]
     Dosage: 100 MG/DAY
     Route: 048

REACTIONS (2)
  - BLOOD GLUCOSE INCREASED [None]
  - DIABETES MELLITUS NON-INSULIN-DEPENDENT [None]
